FAERS Safety Report 10783299 (Version 2)
Quarter: 2015Q2

REPORT INFORMATION
  Report Type: Spontaneous
  Country: US (occurrence: US)
  Receive Date: 20150210
  Receipt Date: 20150603
  Transmission Date: 20150821
  Serious: No
  Sender: FDA-Public Use
  Company Number: US-GLAXOSMITHKLINE-US2014GSK049964

PATIENT
  Sex: Male
  Weight: 83.9 kg

DRUGS (1)
  1. VOTRIENT [Suspect]
     Active Substance: PAZOPANIB HYDROCHLORIDE
     Indication: RENAL CELL CARCINOMA
     Dosage: 800 MG, QD
     Route: 048
     Dates: start: 201406

REACTIONS (5)
  - Fatigue [Recovered/Resolved]
  - Feeling of body temperature change [Recovered/Resolved]
  - Alopecia [Recovered/Resolved]
  - Weight fluctuation [Recovered/Resolved]
  - Lacrimation increased [Recovering/Resolving]
